FAERS Safety Report 5426325-9 (Version None)
Quarter: 2007Q3

REPORT INFORMATION
  Report Type: 
  Country: None (occurrence: None)
  Receive Date: 20070827
  Receipt Date: 20070822
  Transmission Date: 20080115
  Serious: Yes (Other)
  Sender: FDA-Public Use
  Company Number: AT-BRISTOL-MYERS SQUIBB COMPANY-13885827

PATIENT
  Age: 27 Year

DRUGS (5)
  1. ABATACEPT [Suspect]
     Indication: JUVENILE ARTHRITIS
     Route: 042
     Dates: start: 20070601, end: 20070821
  2. PANTOPRAZOLE SODIUM [Concomitant]
     Route: 048
     Dates: start: 20070401
  3. ALENDRONATE SODIUM [Concomitant]
     Route: 048
     Dates: start: 20070401
  4. METAMIZOL [Concomitant]
     Route: 048
  5. NAPROXEN [Concomitant]
     Route: 048

REACTIONS (5)
  - ANXIETY [None]
  - CHEST DISCOMFORT [None]
  - CHILLS [None]
  - HEADACHE [None]
  - VISUAL DISTURBANCE [None]
